FAERS Safety Report 20969365 (Version 1)
Quarter: 2022Q2

REPORT INFORMATION
  Report Type: Spontaneous
  Country: US (occurrence: US)
  Receive Date: 20220616
  Receipt Date: 20220616
  Transmission Date: 20220720
  Serious: No
  Sender: FDA-Public Use
  Company Number: US-PFIZER INC-PV202200002647

PATIENT
  Age: 70 Year

DRUGS (2)
  1. AZULFIDINE [Suspect]
     Active Substance: SULFASALAZINE
     Dosage: UNK
  2. CLARITIN-D NOS [Suspect]
     Active Substance: LORATADINE\PSEUDOEPHEDRINE SULFATE
     Indication: Hypersensitivity
     Dosage: UNK

REACTIONS (3)
  - COVID-19 [Unknown]
  - Terminal insomnia [Unknown]
  - Nocturia [Unknown]
